FAERS Safety Report 14899457 (Version 1)
Quarter: 2018Q2

REPORT INFORMATION
  Report Type: Report from Study
  Country: DE (occurrence: DE)
  Receive Date: 20180516
  Receipt Date: 20180516
  Transmission Date: 20180711
  Serious: Yes (Hospitalization, Other)
  Sender: FDA-Public Use
  Company Number: DE-ACCORD-066976

PATIENT
  Age: 64 Year
  Sex: Male
  Weight: 104 kg

DRUGS (12)
  1. FLUOROURACIL. [Suspect]
     Active Substance: FLUOROURACIL
     Indication: COLORECTAL CANCER
     Dosage: RECEIVED 3200 MG INTRAVENOUS DRIP
     Route: 040
     Dates: start: 20160112, end: 20160331
  2. AVASTIN [Suspect]
     Active Substance: BEVACIZUMAB
     Indication: COLORECTAL CANCER
     Dosage: LAST DOSE PRIOR TO COLON PERFORATION
     Route: 042
     Dates: start: 20160112
  3. OXALIPLATIN. [Concomitant]
     Active Substance: OXALIPLATIN
     Indication: COLORECTAL CANCER
     Route: 042
     Dates: start: 20160112, end: 20160331
  4. COLECALCIFEROL [Concomitant]
     Active Substance: CHOLECALCIFEROL
     Route: 048
     Dates: start: 20160112
  5. IRINOTECAN [Concomitant]
     Active Substance: IRINOTECAN
     Indication: COLORECTAL CANCER
     Route: 042
     Dates: start: 20160112, end: 20160331
  6. GRANISETRON [Concomitant]
     Active Substance: GRANISETRON
     Indication: VOMITING
     Dosage: DAY 1 OF CYCLE
     Route: 042
     Dates: start: 20160112
  7. METAMIZOLE SODIUM [Concomitant]
     Active Substance: METAMIZOLE SODIUM
     Indication: PAIN
     Route: 048
  8. MCP [Concomitant]
     Active Substance: METOCLOPRAMIDE HYDROCHLORIDE
     Indication: NAUSEA
     Route: 048
     Dates: start: 20160127
  9. DEXAMETHASONE. [Concomitant]
     Active Substance: DEXAMETHASONE
     Indication: VOMITING
     Dosage: DAY 1 OF CYCLE
     Route: 042
     Dates: start: 20160112
  10. ATROPINE. [Concomitant]
     Active Substance: ATROPINE
     Dosage: DAY 1 OF CYCLE
     Route: 058
     Dates: start: 20160112
  11. ONDANSETRON [Concomitant]
     Active Substance: ONDANSETRON
     Indication: VOMITING
     Dosage: DAY 2 AND DAY 3 OF CYCLE
     Route: 048
     Dates: start: 20160113
  12. FOLINIC ACID [Concomitant]
     Active Substance: LEUCOVORIN
     Indication: COLORECTAL CANCER
     Route: 042
     Dates: start: 20160112, end: 20160331

REACTIONS (9)
  - Wound [Recovered/Resolved]
  - Large intestine perforation [Recovered/Resolved]
  - Impaired healing [Recovered/Resolved]
  - Enterocutaneous fistula [Unknown]
  - Abscess [Recovered/Resolved]
  - Metastasis [Recovered/Resolved]
  - Fistula [Recovered/Resolved]
  - Renal function test abnormal [Unknown]
  - Mucosal inflammation [Unknown]

NARRATIVE: CASE EVENT DATE: 20160321
